FAERS Safety Report 8542379-5 (Version None)
Quarter: 2012Q3

REPORT INFORMATION
  Report Type: 
  Country: None (occurrence: None)
  Receive Date: 20120726
  Receipt Date: 20110919
  Transmission Date: 20120928
  Serious: Yes (Hospitalization)
  Sender: FDA-Public Use
  Company Number: US-ASTRAZENECA-2011SE56202

PATIENT
  Age: 58 Year
  Sex: Male
  Weight: 69.9 kg

DRUGS (2)
  1. HCTD [Concomitant]
     Indication: BLOOD PRESSURE
  2. SEROQUEL XR [Suspect]
     Indication: BIPOLAR DISORDER
     Route: 048
     Dates: start: 20100101

REACTIONS (1)
  - DRUG WITHDRAWAL SYNDROME [None]
